FAERS Safety Report 7005170-7 (Version None)
Quarter: 2010Q3

REPORT INFORMATION
  Report Type: 
  Country: None (occurrence: None)
  Receive Date: 20100921
  Receipt Date: 20100913
  Transmission Date: 20110219
  Serious: Yes (Other)
  Sender: FDA-Public Use
  Company Number: FR-JNJFOC-20100900985

PATIENT
  Age: 80 Year
  Sex: Female

DRUGS (3)
  1. TOPIRAMATE [Suspect]
     Indication: ACCIDENTAL EXPOSURE
     Route: 048
  2. TEGRETOL [Suspect]
     Indication: ACCIDENTAL EXPOSURE
     Route: 048
  3. AMLODIPINE [Suspect]
     Indication: ACCIDENTAL EXPOSURE
     Route: 048

REACTIONS (6)
  - ACCIDENTAL EXPOSURE [None]
  - DIZZINESS [None]
  - MALAISE [None]
  - MEDICATION ERROR [None]
  - SOMNOLENCE [None]
  - WRONG DRUG ADMINISTERED [None]
